FAERS Safety Report 12056633 (Version 2)
Quarter: 2016Q1

REPORT INFORMATION
  Report Type: Spontaneous
  Country: US (occurrence: US)
  Receive Date: 20160210
  Receipt Date: 20160323
  Transmission Date: 20160526
  Serious: No
  Sender: FDA-Public Use
  Company Number: US-APOTEX-2016AP005946

PATIENT
  Sex: Female

DRUGS (1)
  1. CELECOXIB. [Suspect]
     Active Substance: CELECOXIB
     Indication: MIGRAINE
     Dosage: UNK
     Route: 065

REACTIONS (6)
  - Pain [Unknown]
  - Drug ineffective [Unknown]
  - Product physical issue [Unknown]
  - Muscle spasms [Unknown]
  - Muscle tightness [Unknown]
  - Product substitution issue [Unknown]
